FAERS Safety Report 20209925 (Version 1)
Quarter: 2021Q4

REPORT INFORMATION
  Report Type: Spontaneous
  Country: JP (occurrence: JP)
  Receive Date: 20211221
  Receipt Date: 20211221
  Transmission Date: 20220304
  Serious: Yes (Hospitalization)
  Sender: FDA-Public Use
  Company Number: JP-LUPIN PHARMACEUTICALS INC.-2021-24930

PATIENT
  Age: 66 Year
  Sex: Female

DRUGS (6)
  1. LORAZEPAM [Suspect]
     Active Substance: LORAZEPAM
     Indication: Status epilepticus
     Dosage: A TOTAL OF 1.5 MG LORAZEPAM WAS ADMINISTERED
     Route: 048
  2. LORAZEPAM [Suspect]
     Active Substance: LORAZEPAM
     Indication: Catatonia
  3. DIAZEPAM [Suspect]
     Active Substance: DIAZEPAM
     Indication: Status epilepticus
     Dosage: 10 MILLIGRAM
     Route: 042
  4. DIAZEPAM [Suspect]
     Active Substance: DIAZEPAM
     Indication: Catatonia
  5. FOSPHENYTOIN [Suspect]
     Active Substance: FOSPHENYTOIN
     Indication: Status epilepticus
     Dosage: 750 MILLIGRAM
     Route: 042
  6. FOSPHENYTOIN [Suspect]
     Active Substance: FOSPHENYTOIN
     Indication: Catatonia

REACTIONS (2)
  - Drug ineffective for unapproved indication [Unknown]
  - Off label use [Unknown]

NARRATIVE: CASE EVENT DATE: 20171001
